FAERS Safety Report 17360218 (Version 11)
Quarter: 2020Q4

REPORT INFORMATION
  Report Type: Spontaneous
  Country: JP (occurrence: JP)
  Receive Date: 20200203
  Receipt Date: 20201225
  Transmission Date: 20210113
  Serious: Yes (Hospitalization, Other)
  Sender: FDA-Public Use
  Company Number: JP-AMGEN-JPNSP2019109964

PATIENT
  Age: 53 Year
  Sex: Female
  Weight: 43.7 kg

DRUGS (28)
  1. OXAROL [Concomitant]
     Active Substance: MAXACALCITOL
     Dosage: 10 MICROGRAM, QWK
     Route: 042
     Dates: start: 20190826, end: 20191011
  2. OXAROL [Concomitant]
     Active Substance: MAXACALCITOL
     Dosage: 5 UG, Q56H
     Route: 042
     Dates: start: 20181224, end: 20190614
  3. OXAROL [Concomitant]
     Active Substance: MAXACALCITOL
     Dosage: 5 UG, Q84H
     Route: 042
     Dates: start: 20190617, end: 20190712
  4. OXAROL [Concomitant]
     Active Substance: MAXACALCITOL
     Dosage: 7.5 MICROGRAM, Q84H
     Route: 042
     Dates: start: 20190715, end: 20190726
  5. OXAROL [Concomitant]
     Active Substance: MAXACALCITOL
     Dosage: 10 UG, Q84H
     Route: 042
     Dates: start: 20191014, end: 20191127
  6. MIRCERA [Concomitant]
     Active Substance: METHOXY POLYETHYLENE GLYCOL-EPOETIN BETA
     Dosage: 250 MICROGRAM, Q4WK
     Route: 065
     Dates: start: 20191104, end: 20200120
  7. OXAROL [Concomitant]
     Active Substance: MAXACALCITOL
     Indication: PRODUCT USED FOR UNKNOWN INDICATION
     Dosage: 5 MICROGRAM, Q56H
     Route: 042
     Dates: start: 20181224, end: 20190614
  8. OXAROL [Concomitant]
     Active Substance: MAXACALCITOL
     Dosage: 7.5 MICROGRAM, QWK
     Route: 042
     Dates: start: 20191014, end: 20191127
  9. FESIN [SACCHARATED IRON OXIDE] [Concomitant]
     Active Substance: IRON SUCROSE
     Dosage: 40 MILLIGRAM, QWK
     Route: 065
     Dates: start: 20200617
  10. OXAROL [Concomitant]
     Active Substance: MAXACALCITOL
     Dosage: 10 MICROGRAM, Q84H
     Route: 042
     Dates: start: 20191129
  11. OXAROL [Concomitant]
     Active Substance: MAXACALCITOL
     Dosage: 7.5 UG, Q56H
     Route: 042
     Dates: start: 20190729, end: 20190823
  12. OXAROL [Concomitant]
     Active Substance: MAXACALCITOL
     Dosage: 10 MICROGRAM, Q84H
     Route: 042
     Dates: start: 20191014, end: 20191127
  13. OXAROL [Concomitant]
     Active Substance: MAXACALCITOL
     Dosage: 10 UG, Q56H
     Route: 042
     Dates: start: 20191129
  14. MIRCERA [Concomitant]
     Active Substance: METHOXY POLYETHYLENE GLYCOL-EPOETIN BETA
     Indication: PRODUCT USED FOR UNKNOWN INDICATION
     Dosage: 150 UG, Q4W (UNK - 03-JUN-2019)
     Route: 065
     Dates: end: 20190603
  15. FESIN [SACCHARATED IRON OXIDE] [Concomitant]
     Active Substance: IRON SUCROSE
     Indication: PRODUCT USED FOR UNKNOWN INDICATION
     Dosage: 40 MILLIGRAM, QWK
     Route: 065
     Dates: end: 20190501
  16. OXAROL [Concomitant]
     Active Substance: MAXACALCITOL
     Dosage: 5 MICROGRAM, Q84H
     Route: 042
     Dates: start: 20190617, end: 20190712
  17. OXAROL [Concomitant]
     Active Substance: MAXACALCITOL
     Dosage: 5 MICROGRAM, QWK
     Route: 042
     Dates: start: 20190715, end: 20190726
  18. OXAROL [Concomitant]
     Active Substance: MAXACALCITOL
     Dosage: 7.5 UG, Q84H
     Route: 042
     Dates: start: 20190826, end: 20191011
  19. OXAROL [Concomitant]
     Active Substance: MAXACALCITOL
     Dosage: 7.5 UG, Q84H
     Route: 042
     Dates: start: 20190715, end: 20190726
  20. KIKLIN [Concomitant]
     Active Substance: BIXALOMER
     Dosage: 3000 MILLIGRAM, QD
     Route: 065
     Dates: start: 20191107
  21. MIRCERA [Concomitant]
     Active Substance: METHOXY POLYETHYLENE GLYCOL-EPOETIN BETA
     Dosage: 200 MICROGRAM, Q4WK
     Route: 065
     Dates: start: 20190617, end: 20191021
  22. FESIN [SACCHARATED IRON OXIDE] [Concomitant]
     Active Substance: IRON SUCROSE
     Dosage: 40 MILLIGRAM, QWK
     Route: 065
     Dates: start: 20191107, end: 20200212
  23. PARSABIV [Suspect]
     Active Substance: ETELCALCETIDE HYDROCHLORIDE
     Indication: HYPERPARATHYROIDISM SECONDARY
     Dosage: 5 MILLIGRAM, Q56H
     Route: 010
     Dates: start: 20190520
  24. OXAROL [Concomitant]
     Active Substance: MAXACALCITOL
     Dosage: 7.5 MICROGRAM, QWK
     Route: 042
     Dates: start: 20190619, end: 20190712
  25. OXAROL [Concomitant]
     Active Substance: MAXACALCITOL
     Dosage: 7.5 MICROGRAM, Q84H
     Route: 042
     Dates: start: 20190729, end: 20190823
  26. OXAROL [Concomitant]
     Active Substance: MAXACALCITOL
     Dosage: 7.5 MICROGRAM, Q84H
     Route: 042
     Dates: start: 20190826, end: 20191011
  27. KIKLIN [Concomitant]
     Active Substance: BIXALOMER
     Indication: PRODUCT USED FOR UNKNOWN INDICATION
     Dosage: 5250 MILLIGRAM, QD
     Route: 065
     Dates: end: 20191106
  28. FESIN [SACCHARATED IRON OXIDE] [Concomitant]
     Active Substance: IRON SUCROSE
     Dosage: 40 MILLIGRAM, QWK
     Route: 065
     Dates: start: 20200318, end: 20200603

REACTIONS (5)
  - Myocardial ischaemia [Recovered/Resolved]
  - Shunt stenosis [Recovered/Resolved]
  - Shunt stenosis [Recovered/Resolved]
  - Limb fracture [Recovering/Resolving]
  - Shunt stenosis [Recovered/Resolved]

NARRATIVE: CASE EVENT DATE: 20190624
